FAERS Safety Report 19394621 (Version 1)
Quarter: 2021Q2

REPORT INFORMATION
  Report Type: Spontaneous
  Country: US (occurrence: US)
  Receive Date: 20210609
  Receipt Date: 20210609
  Transmission Date: 20210717
  Serious: Yes (Other)
  Sender: FDA-Public Use
  Company Number: US-HIKMA PHARMACEUTICALS USA INC.-US-H14001-21-02661

PATIENT
  Age: 24 Year
  Sex: Male

DRUGS (6)
  1. PREDNISONE. [Suspect]
     Active Substance: PREDNISONE
     Indication: XANTHOGRANULOMA
     Dosage: HIGH DOSE
     Route: 065
  2. LEUCOVORIN. [Suspect]
     Active Substance: LEUCOVORIN
     Indication: XANTHOGRANULOMA
     Dosage: UNKNOWN
     Route: 065
  3. CLADRIBINE. [Concomitant]
     Active Substance: CLADRIBINE
     Indication: XANTHOGRANULOMA
     Dosage: UNKNOWN
     Route: 065
  4. METHOTREXATE. [Suspect]
     Active Substance: METHOTREXATE
     Indication: XANTHOGRANULOMA
     Dosage: UNKNOWN
     Route: 065
  5. 6?MERCAPTOPURINE [Concomitant]
     Active Substance: MERCAPTOPURINE
     Indication: XANTHOGRANULOMA
     Dosage: UNKNOWN
     Route: 065
  6. VINBLASTINE [Concomitant]
     Active Substance: VINBLASTINE
     Indication: XANTHOGRANULOMA
     Dosage: UNKNOWN
     Route: 065

REACTIONS (2)
  - Adverse drug reaction [Unknown]
  - Pancytopenia [Unknown]
